FAERS Safety Report 6635478-6 (Version None)
Quarter: 2010Q1

REPORT INFORMATION
  Report Type: 
  Country: None (occurrence: None)
  Receive Date: 20100315
  Receipt Date: 20090508
  Transmission Date: 20100710
  Serious: No
  Sender: FDA-Public Use
  Company Number: US-ABBOTT-09P-163-0572518-00

PATIENT
  Sex: Female
  Weight: 56.75 kg

DRUGS (3)
  1. DEPAKOTE [Suspect]
     Indication: CONVULSION
     Route: 048
     Dates: start: 20060101, end: 20090301
  2. DEPAKOTE [Suspect]
     Route: 048
     Dates: start: 20090301
  3. KEPPRA [Concomitant]
     Indication: CONVULSION
     Route: 048
     Dates: start: 20060101, end: 20090101

REACTIONS (4)
  - CONVULSION [None]
  - HAEMORRHAGE [None]
  - MEDICATION RESIDUE [None]
  - TONGUE INJURY [None]
